FAERS Safety Report 4697272-5 (Version None)
Quarter: 2005Q2

REPORT INFORMATION
  Report Type: 
  Country: None (occurrence: None)
  Receive Date: 20050622
  Receipt Date: 20050330
  Transmission Date: 20051028
  Serious: Yes (Hospitalization, Other)
  Sender: FDA-Public Use
  Company Number: 2005PK00519

PATIENT
  Age: 13888 Day
  Sex: Male
  Weight: 76 kg

DRUGS (7)
  1. GEFITINIB [Suspect]
     Indication: NON-SMALL CELL LUNG CANCER
     Route: 048
     Dates: start: 20041213, end: 20050102
  2. GEFITINIB [Suspect]
     Route: 048
     Dates: start: 20050113
  3. RADIATION THERAPY [Suspect]
     Indication: NON-SMALL CELL LUNG CANCER
     Dates: start: 20041222, end: 20050210
  4. IBUHEXAL [Concomitant]
     Indication: PAIN
  5. LISIGAMMA [Concomitant]
     Indication: HYPERTENSION
  6. RIFUN [Concomitant]
     Indication: GASTRITIS
  7. TEPILTA [Concomitant]
     Indication: GASTRITIS

REACTIONS (3)
  - DYSPNOEA EXACERBATED [None]
  - PERFORMANCE STATUS DECREASED [None]
  - PNEUMONIA [None]
